FAERS Safety Report 12583374 (Version 2)
Quarter: 2016Q3

REPORT INFORMATION
  Report Type: Report from Study
  Country: IT (occurrence: IT)
  Receive Date: 20160722
  Receipt Date: 20160725
  Transmission Date: 20161109
  Serious: Yes (Death, Hospitalization)
  Sender: FDA-Public Use
  Company Number: PHHY2016IT019596

PATIENT
  Age: 56 Year
  Sex: Male
  Weight: 84 kg

DRUGS (4)
  1. TRAMETINIB [Suspect]
     Active Substance: TRAMETINIB
     Indication: METASTATIC MALIGNANT MELANOMA
     Dosage: 02 MG, QD
     Route: 048
     Dates: start: 20150408, end: 20160717
  2. DABRAFENIB [Suspect]
     Active Substance: DABRAFENIB
     Indication: METASTATIC MALIGNANT MELANOMA
     Dosage: 150 MG, BID
     Route: 048
     Dates: start: 20150408
  3. LEVOTIROXINA [Concomitant]
     Active Substance: LEVOTHYROXINE SODIUM
     Indication: HYPOPHYSITIS
     Dosage: 75 MG, UNK
     Route: 065
  4. CORTISONE ACETATE. [Concomitant]
     Active Substance: CORTISONE ACETATE
     Indication: HYPOPHYSITIS
     Dosage: 37.5 MG, UNK
     Route: 065

REACTIONS (5)
  - Malignant neoplasm progression [Fatal]
  - Neoplasm of orbit [Recovering/Resolving]
  - Pain [Unknown]
  - Diplopia [Recovering/Resolving]
  - Musculoskeletal pain [Recovering/Resolving]

NARRATIVE: CASE EVENT DATE: 20160208
